FAERS Safety Report 6528760-4 (Version None)
Quarter: 2009Q4

REPORT INFORMATION
  Report Type: 
  Country: None (occurrence: None)
  Receive Date: 20091222
  Receipt Date: 20091209
  Transmission Date: 20100525
  Serious: Yes (Death, Other)
  Sender: FDA-Public Use
  Company Number: CN-JNJFOC-200911 07942

PATIENT
  Age: 59 Year
  Sex: Male

DRUGS (1)
  1. DACOGEN [Suspect]
     Indication: MYELODYSPLASTIC SYNDROME
     Dosage: 50 MG, INTRAVENOUS
     Route: 042
     Dates: start: 20090826

REACTIONS (3)
  - DYSURIA [None]
  - EATING DISORDER [None]
  - LUNG INFECTION [None]
